FAERS Safety Report 24617187 (Version 1)
Quarter: 2024Q4

REPORT INFORMATION
  Report Type: Spontaneous
  Country: US (occurrence: US)
  Receive Date: 20241114
  Receipt Date: 20241114
  Transmission Date: 20250115
  Serious: Yes (Other)
  Sender: COOPERSURGICAL
  Company Number: US-COOPERSURGICAL, INC.-2024CPS003377

PATIENT
  Age: 34 Year
  Sex: Female
  Weight: 72.109 kg

DRUGS (2)
  1. PARAGARD T 380A [Suspect]
     Active Substance: COPPER
     Indication: Intrauterine contraception
     Dosage: UNK
     Route: 015
     Dates: start: 20170816
  2. TOPAMAX [Concomitant]
     Active Substance: TOPIRAMATE
     Dosage: UNK
     Dates: start: 200905

REACTIONS (18)
  - Rectal haemorrhage [Unknown]
  - Device breakage [Not Recovered/Not Resolved]
  - Foreign body in reproductive tract [Not Recovered/Not Resolved]
  - Complication of device removal [Not Recovered/Not Resolved]
  - Embedded device [Not Recovered/Not Resolved]
  - Diarrhoea [Unknown]
  - Device issue [Unknown]
  - Iron deficiency [Unknown]
  - Abdominal pain [Not Recovered/Not Resolved]
  - Vaginal discharge [Unknown]
  - Hypomenorrhoea [Unknown]
  - Heavy menstrual bleeding [Unknown]
  - Bacterial vaginosis [Not Recovered/Not Resolved]
  - Bacterial vulvovaginitis [Not Recovered/Not Resolved]
  - Intermenstrual bleeding [Not Recovered/Not Resolved]
  - Pelvic pain [Not Recovered/Not Resolved]
  - Back pain [Not Recovered/Not Resolved]
  - Dyspareunia [Not Recovered/Not Resolved]

NARRATIVE: CASE EVENT DATE: 20200908
